FAERS Safety Report 9071311 (Version 2)
Quarter: 2020Q3

REPORT INFORMATION
  Report Type: Report from Study
  Country: HU (occurrence: HU)
  Receive Date: 20130129
  Receipt Date: 20130213
  Transmission Date: 20201104
  Serious: Yes (Death)
  Sender: FDA-Public Use
  Company Number: HU-ROCHE-1184417

PATIENT
  Sex: Female
  Weight: 68 kg

DRUGS (1)
  1. IBANDRONIC ACID. [Suspect]
     Active Substance: IBANDRONIC ACID
     Indication: METASTASES TO BONE
     Route: 042
     Dates: start: 20090507, end: 20100304

REACTIONS (1)
  - Cardiopulmonary failure [Fatal]
